FAERS Safety Report 5626318-2 (Version None)
Quarter: 2008Q1

REPORT INFORMATION
  Report Type: 
  Country: None (occurrence: None)
  Receive Date: 20080214
  Receipt Date: 20080204
  Transmission Date: 20080703
  Serious: Yes (Death, Other)
  Sender: FDA-Public Use
  Company Number: US-ELI_LILLY_AND_COMPANY-US200710006941

PATIENT
  Age: 59 Year
  Sex: Female

DRUGS (2)
  1. GEMZAR [Suspect]
     Indication: BREAST CANCER STAGE IV
     Dosage: 1250 MG/M2, UNK
  2. TAXOL [Concomitant]
     Indication: BREAST CANCER STAGE IV
     Dosage: UNK, UNK

REACTIONS (4)
  - HAEMOLYTIC URAEMIC SYNDROME [None]
  - MALIGNANT NEOPLASM PROGRESSION [None]
  - RENAL FAILURE [None]
  - THROMBOTIC THROMBOCYTOPENIC PURPURA [None]
